FAERS Safety Report 6506008-4 (Version None)
Quarter: 2009Q4

REPORT INFORMATION
  Report Type: 
  Country: None (occurrence: None)
  Receive Date: 20091218
  Receipt Date: 20091208
  Transmission Date: 20100525
  Serious: Yes (Hospitalization)
  Sender: FDA-Public Use
  Company Number: BR-PFIZER INC-2009307607

PATIENT
  Age: 8 Year
  Sex: Male
  Weight: 25 kg

DRUGS (2)
  1. SOLU-MEDROL [Suspect]
     Indication: RENAL DISORDER
     Dosage: UNK
     Route: 042
     Dates: start: 20080101, end: 20080101
  2. METICORTEN [Concomitant]
     Indication: RENAL DISORDER
     Dosage: UNK
     Dates: start: 20050101

REACTIONS (2)
  - DRUG PRESCRIBING ERROR [None]
  - URINARY TRACT DISORDER [None]
